FAERS Safety Report 25184927 (Version 2)
Quarter: 2025Q2

REPORT INFORMATION
  Report Type: Spontaneous
  Country: JP (occurrence: JP)
  Receive Date: 20250410
  Receipt Date: 20250423
  Transmission Date: 20250716
  Serious: No
  Sender: AKEBIA THERAPEUTICS
  Company Number: JP-IQVIA-JT2025JP000092

PATIENT
  Sex: Male
  Weight: 66 kg

DRUGS (12)
  1. FERRIC CITRATE ANHYDROUS [Suspect]
     Active Substance: FERRIC CITRATE ANHYDROUS
     Indication: Product used for unknown indication
     Dosage: 500 MILLIGRAM, BID
     Route: 048
  2. ENARODUSTAT [Suspect]
     Active Substance: ENARODUSTAT
     Indication: Nephrogenic anaemia
     Dosage: 2 MILLIGRAM, QD
     Route: 048
     Dates: start: 20230828, end: 20231119
  3. ENARODUSTAT [Suspect]
     Active Substance: ENARODUSTAT
     Dosage: 4 MILLIGRAM, QD
     Route: 048
     Dates: start: 20231120, end: 20231211
  4. ENARODUSTAT [Suspect]
     Active Substance: ENARODUSTAT
     Dosage: 6 MILLIGRAM, QD
     Route: 048
     Dates: start: 20231212, end: 20240114
  5. ENARODUSTAT [Suspect]
     Active Substance: ENARODUSTAT
     Dosage: 8 MILLIGRAM, QD
     Route: 048
     Dates: start: 20240115
  6. CALTAN [Concomitant]
     Active Substance: CALCIUM CARBONATE
     Indication: Glomerulonephritis chronic
     Dosage: 500 MILLIGRAM, BID
     Route: 048
  7. PRAVASTATIN SODIUM [Concomitant]
     Active Substance: PRAVASTATIN SODIUM
     Indication: Glomerulonephritis chronic
     Dosage: 10 MILLIGRAM, QD
     Route: 048
  8. CARVEDILOL [Concomitant]
     Active Substance: CARVEDILOL
     Indication: Myocardial ischaemia
     Dosage: 5 MILLIGRAM, QD
     Route: 048
  9. CARVEDILOL [Concomitant]
     Active Substance: CARVEDILOL
     Indication: Hypertension
  10. MAGNESIUM OXIDE [Concomitant]
     Active Substance: MAGNESIUM OXIDE
     Indication: Constipation
     Dosage: 330 MILLIGRAM, QD
     Route: 048
  11. LAFUTIDINE [Concomitant]
     Active Substance: LAFUTIDINE
     Indication: Prophylaxis
     Dosage: 10 MILLIGRAM, QD
     Route: 048
     Dates: end: 20231217
  12. ENTRESTO [Concomitant]
     Active Substance: SACUBITRIL\VALSARTAN
     Indication: Glomerulonephritis chronic
     Dosage: 200 MILLIGRAM, QD
     Route: 048

REACTIONS (1)
  - No adverse event [Unknown]
